FAERS Safety Report 9951804 (Version 1)
Quarter: 2014Q1

REPORT INFORMATION
  Report Type: Spontaneous
  Country: US (occurrence: US)
  Receive Date: 20140304
  Receipt Date: 20140304
  Transmission Date: 20141002
  Serious: No
  Sender: FDA-Public Use
  Company Number: US-AMGEN-USASP2013067578

PATIENT
  Age: 55 Year
  Sex: Female
  Weight: 90.7 kg

DRUGS (10)
  1. ENBREL [Suspect]
     Indication: PRODUCT USED FOR UNKNOWN INDICATION
     Dosage: 50 MG, QWK
     Route: 058
  2. HYDROXYCHLOROQUINE [Concomitant]
     Dosage: 200 MG, UNK
  3. GLIMEPIRIDE [Concomitant]
     Dosage: 1 MG, UNK
  4. AMITRIPTYLINE [Concomitant]
     Dosage: 100 MG, UNK
  5. LANTUS [Concomitant]
     Dosage: 100 UNK, /ML
  6. CALCIUM [Concomitant]
     Dosage: UNK
  7. PREDNISONE [Concomitant]
     Dosage: 1 MG, UNK
  8. AZATHIOPRINE [Concomitant]
     Dosage: 50 MG, UNK
  9. VITAMIN B12                        /00056201/ [Concomitant]
     Dosage: 100 MUG, UNK
  10. VITAMIN D                          /00107901/ [Concomitant]
     Dosage: 2000 UNIT, UNK

REACTIONS (1)
  - Rash [Unknown]
